FAERS Safety Report 20959170 (Version 1)
Quarter: 2022Q2

REPORT INFORMATION
  Report Type: Spontaneous
  Country: US (occurrence: US)
  Receive Date: 20220614
  Receipt Date: 20220614
  Transmission Date: 20220720
  Serious: Yes (Death, Other)
  Sender: FDA-Public Use
  Company Number: US-SA-SAC20220613001193

PATIENT
  Age: 58 Year
  Sex: Female

DRUGS (1)
  1. ZANTAC [Suspect]
     Active Substance: RANITIDINE HYDROCHLORIDE
     Indication: Gastrooesophageal reflux disease
     Dosage: UNKNOWN AT THIS TIME
     Route: 065
     Dates: start: 198701, end: 201912

REACTIONS (5)
  - Colorectal cancer [Fatal]
  - Breast cancer female [Fatal]
  - Skin cancer [Fatal]
  - Bladder cancer [Fatal]
  - Neoplasm malignant [Fatal]

NARRATIVE: CASE EVENT DATE: 19970101
